FAERS Safety Report 9135888 (Version 1)
Quarter: 2013Q1

REPORT INFORMATION
  Report Type: Spontaneous
  Country: CA (occurrence: CA)
  Receive Date: 20130304
  Receipt Date: 20130304
  Transmission Date: 20140127
  Serious: Yes (Other)
  Sender: FDA-Public Use
  Company Number: CA-PFIZER INC-2012227255

PATIENT
  Age: 41 Year
  Sex: Male
  Weight: 79 kg

DRUGS (4)
  1. CHAMPIX [Suspect]
     Indication: SMOKING CESSATION THERAPY
     Dosage: 0.5 MG, UNK
     Dates: start: 20110215, end: 2011
  2. CHAMPIX [Suspect]
     Dosage: 1 MG, 2X/DAY
     Dates: start: 2011, end: 20110407
  3. MAXALT [Concomitant]
     Indication: MIGRAINE
     Dosage: 10 MG, AS NEEDED
  4. PRIMIDONE [Concomitant]
     Indication: PROPHYLAXIS
     Dosage: 375 MG, 1X/DAY AT BEDTIME
     Route: 048

REACTIONS (5)
  - Mood altered [Recovering/Resolving]
  - Violence-related symptom [Recovering/Resolving]
  - Mood swings [Recovering/Resolving]
  - Anger [Recovering/Resolving]
  - Verbal abuse [Recovering/Resolving]
